FAERS Safety Report 5903323-X (Version None)
Quarter: 2008Q3

REPORT INFORMATION
  Report Type: 
  Country: None (occurrence: None)
  Receive Date: 20080930
  Receipt Date: 20080925
  Transmission Date: 20090109
  Serious: Yes (Other)
  Sender: FDA-Public Use
  Company Number: D0058841A

PATIENT
  Age: 55 Year
  Sex: Female
  Weight: 50 kg

DRUGS (1)
  1. MYLERAN [Suspect]
     Dosage: 4MG PER DAY
     Route: 048
     Dates: start: 20080307, end: 20080318

REACTIONS (4)
  - AGEUSIA [None]
  - APHTHOUS STOMATITIS [None]
  - PARAESTHESIA [None]
  - POLYNEUROPATHY [None]
